FAERS Safety Report 10241100 (Version 1)
Quarter: 2014Q2

REPORT INFORMATION
  Report Type: Spontaneous
  Country: US (occurrence: US)
  Receive Date: 20140617
  Receipt Date: 20140617
  Transmission Date: 20141212
  Serious: Yes (Other)
  Sender: FDA-Public Use
  Company Number: PHEH2014US011711

PATIENT
  Age: 64 Year
  Sex: Male

DRUGS (8)
  1. TASIGNA [Suspect]
     Dosage: 4 DF, QD
     Route: 048
     Dates: start: 201310
  2. RAMIPRIL [Suspect]
     Dosage: 1 DF, QD
  3. TOPROL XL [Concomitant]
     Dosage: 1 DF, QD
  4. NEXIUM//ESOMEPRAZOLE MAGNESIUM [Concomitant]
     Dosage: 1 DF, QD
  5. LIPITOR [Concomitant]
     Dosage: 1 DF, QD
  6. BABY ASPIRIN [Concomitant]
     Dosage: 1 DF, QD
  7. VITAMIN D [Concomitant]
     Dosage: 2 DF, QD
  8. FISH OIL [Concomitant]
     Dosage: 2 DF, QD

REACTIONS (1)
  - Blood potassium increased [Unknown]
